FAERS Safety Report 8789281 (Version 1)
Quarter: 2012Q4

REPORT INFORMATION
  Report Type: Spontaneous
  Country: US (occurrence: None)
  Receive Date: 20120910
  Receipt Date: 20120910
  Transmission Date: 20130627
  Serious: Yes (Other)
  Sender: FDA-Public Use
  Company Number: None

PATIENT
  Age: 64 Year
  Sex: Female
  Weight: 95.26 kg

DRUGS (2)
  1. ALLERGY ALLER-TEC -CETIRIZINE HC 10 MG KIRLAND SIGNATURE [Suspect]
     Indication: MULTIPLE ALLERGIES
     Route: 048
     Dates: start: 20110208, end: 20120815
  2. ALLERGY ALLER-TEC -CETIRIZINE HC 10 MG KIRLAND SIGNATURE [Suspect]
     Indication: SINUSITIS
     Route: 048
     Dates: start: 20110208, end: 20120815

REACTIONS (2)
  - Pruritus [None]
  - Withdrawal syndrome [None]
